FAERS Safety Report 8967826 (Version 1)
Quarter: 2012Q4

REPORT INFORMATION
  Report Type: Spontaneous
  Country: US (occurrence: None)
  Receive Date: 20121213
  Receipt Date: 20121213
  Transmission Date: 20130627
  Serious: Yes (Other)
  Sender: FDA-Public Use
  Company Number: None

PATIENT
  Age: 63 Year
  Sex: Female
  Weight: 61.24 kg

DRUGS (2)
  1. HYLAND^S LEG CRAMPS [Suspect]
     Indication: CRAMPS
     Dosage: 2 or 3 tablets
     Route: 048
     Dates: start: 20120801, end: 20121201
  2. HYLAND^S LEG CRAMPS [Suspect]
     Indication: LEG CRAMPS
     Dosage: 2 or 3 tablets
     Route: 048
     Dates: start: 20120801, end: 20121201

REACTIONS (3)
  - Heart rate irregular [None]
  - Blood pressure diastolic abnormal [None]
  - Product label issue [None]
